FAERS Safety Report 7552190-X (Version None)
Quarter: 2011Q2

REPORT INFORMATION
  Report Type: 
  Country: None (occurrence: None)
  Receive Date: 20110616
  Receipt Date: 20020510
  Transmission Date: 20111010
  Serious: Yes (Life-Threatening)
  Sender: FDA-Public Use
  Company Number: PHBS2002JP04422

PATIENT
  Sex: Female
  Weight: 36 kg

DRUGS (9)
  1. LOCHOLEST [Suspect]
     Indication: HYPERCHOLESTEROLAEMIA
     Dosage: 40 MG/DAY
     Route: 048
     Dates: start: 20000705, end: 20010923
  2. LOSARTAN POTASSIUM [Concomitant]
     Dates: start: 20000607, end: 20000924
  3. ISOSORBIDE DINITRATE [Suspect]
     Indication: ANGINA PECTORIS
     Dosage: 40 MG/DAY
     Route: 048
     Dates: start: 19990901
  4. NITRODERM [Suspect]
     Indication: ANGINA PECTORIS
     Dosage: 25 MG/DAY
     Route: 061
     Dates: start: 19990901
  5. NORVASC [Concomitant]
     Dates: start: 20010929
  6. DILTIAZEM HCL [Concomitant]
     Dates: start: 19990901
  7. DAIM [Concomitant]
     Dates: start: 19990901
  8. LOCHOLEST [Suspect]
     Dosage: 20 MG/DAY
     Route: 048
     Dates: start: 20010929
  9. FAMOTIDINE [Concomitant]
     Dates: start: 19930715

REACTIONS (3)
  - HYPOTENSION [None]
  - SHOCK [None]
  - DEPRESSED LEVEL OF CONSCIOUSNESS [None]
